FAERS Safety Report 23063609 (Version 2)
Quarter: 2023Q4

REPORT INFORMATION
  Report Type: Other
  Country: CN (occurrence: CN)
  Receive Date: 20231013
  Receipt Date: 20231018
  Transmission Date: 20240109
  Serious: Yes (Other)
  Sender: FDA-Public Use
  Company Number: CN-GE HEALTHCARE-2023CSU009000

PATIENT
  Age: 55 Year
  Sex: Male

DRUGS (4)
  1. OMNIPAQUE [Suspect]
     Active Substance: IOHEXOL
     Indication: Angiocardiogram
     Dosage: 35 GM, SINGLE
     Route: 013
     Dates: start: 20230918, end: 20230918
  2. OMNIPAQUE [Suspect]
     Active Substance: IOHEXOL
     Indication: Percutaneous coronary intervention
  3. OMNIPAQUE [Suspect]
     Active Substance: IOHEXOL
     Indication: Chest discomfort
  4. OMNIPAQUE [Suspect]
     Active Substance: IOHEXOL
     Indication: Tachypnoea

REACTIONS (1)
  - Petechiae [Recovering/Resolving]

NARRATIVE: CASE EVENT DATE: 20230924
